FAERS Safety Report 5302871-3 (Version None)
Quarter: 2007Q2

REPORT INFORMATION
  Report Type: 
  Country: None (occurrence: None)
  Receive Date: 20070420
  Receipt Date: 20070418
  Transmission Date: 20071010
  Serious: Yes (Other)
  Sender: FDA-Public Use
  Company Number: JP-BAYER-200710246BYL

PATIENT
  Age: 77 Year
  Sex: Male

DRUGS (1)
  1. ASPIRIN [Suspect]
     Route: 048
     Dates: start: 20030801, end: 20040701

REACTIONS (1)
  - NEPHRITIS INTERSTITIAL [None]
